FAERS Safety Report 7643582-9 (Version None)
Quarter: 2011Q3

REPORT INFORMATION
  Report Type: 
  Country: None (occurrence: None)
  Receive Date: 20110722
  Receipt Date: 20110713
  Transmission Date: 20111222
  Serious: Yes (Hospitalization)
  Sender: FDA-Public Use
  Company Number: 2011SP002350

PATIENT
  Age: 76 Year
  Sex: Male

DRUGS (8)
  1. PULMICORT [Concomitant]
  2. ALBUTEROL SULFATE AUTOHALER [Concomitant]
  3. BROVANA [Suspect]
     Indication: ACUTE RESPIRATORY DISTRESS SYNDROME
     Dosage: 15 MG, BID,
     Dates: start: 20110701, end: 20110701
  4. BROVANA [Suspect]
     Indication: PULMONARY FIBROSIS
     Dosage: 15 MG, BID,
     Dates: start: 20110701, end: 20110701
  5. ATROVENT [Concomitant]
  6. ATROVENT [Concomitant]
  7. ANTIBIOTICS [Suspect]
     Indication: ACUTE RESPIRATORY DISTRESS SYNDROME
     Dates: start: 20110701
  8. DUONEB [Concomitant]

REACTIONS (1)
  - STEVENS-JOHNSON SYNDROME [None]
